FAERS Safety Report 24297394 (Version 1)
Quarter: 2024Q3

REPORT INFORMATION
  Report Type: Spontaneous
  Country: GB (occurrence: GB)
  Receive Date: 20240909
  Receipt Date: 20240909
  Transmission Date: 20241016
  Serious: No
  Sender: ALKEM
  Company Number: None

PATIENT
  Age: 86 Year
  Sex: Female
  Weight: 55 kg

DRUGS (13)
  1. PREGABALIN [Suspect]
     Active Substance: PREGABALIN
     Indication: Product used for unknown indication
     Dosage: 50 MILLIGRAM, QD (DAY) (CAPSULE)
     Route: 065
     Dates: start: 20230922
  2. CALCIUM CARBONATE\SODIUM ALGINATE\SODIUM BICARBONATE [Concomitant]
     Active Substance: CALCIUM CARBONATE\SODIUM ALGINATE\SODIUM BICARBONATE
     Indication: Product used for unknown indication
     Dosage: 10 MILLILITER, QD (DAY) (BE TAKEN AFTER MEALS)
     Route: 065
     Dates: start: 20220620
  3. CALCIUM\CHOLECALCIFEROL [Concomitant]
     Active Substance: CALCIUM\CHOLECALCIFEROL
     Indication: Vitamin D decreased
     Dosage: UNK, BID (BD FOR LOW VIT DAILY LEVEL)
     Route: 065
     Dates: start: 20200219
  4. Cetraben emollient cream [Concomitant]
     Indication: Product used for unknown indication
     Dosage: UNK, PRN (APPLY TWO TO FOUR TIMES A DAY AND/OR WHEN REQUIRED)
     Route: 065
     Dates: start: 20230824
  5. DIAZEPAM [Concomitant]
     Active Substance: DIAZEPAM
     Indication: Anxiety
     Dosage: UNK, PRN (TAKE ONE AS REQUIRED FOR ACUTE ANXIETY UPTO 3 X)
     Route: 065
     Dates: start: 20210125
  6. FENBID [Concomitant]
     Indication: Product used for unknown indication
     Dosage: UNK, QD (APPLY 3-4 TIMES/DAY TO RIGHT KNEE)
     Route: 065
     Dates: start: 20221031
  7. HUMULIN L [Concomitant]
     Active Substance: INSULIN HUMAN
     Indication: Product used for unknown indication
     Dosage: UNK FOR SUBCUTANEOUS INJECTION, ACCORDING TO REQUIR)
     Route: 058
     Dates: start: 20210125
  8. HYDROXYZINE [Concomitant]
     Active Substance: HYDROXYZINE HYDROCHLORIDE
     Indication: Product used for unknown indication
     Dosage: 1 DOSAGE FORM, HS (TABLET) (EACH NIGHT. FOR STOMACH)
     Route: 065
     Dates: start: 20220620
  9. LACTULOSE [Concomitant]
     Active Substance: LACTULOSE
     Indication: Product used for unknown indication
     Dosage: UNK, BID (10-15ML TO BE TAKEN TWICE DAILY IF NEEDED TO TR)
     Route: 065
     Dates: start: 20230823, end: 20230902
  10. LANSOPRAZOLE [Concomitant]
     Active Substance: LANSOPRAZOLE
     Indication: Product used for unknown indication
     Dosage: 1 DOSAGE FORM, QD (DAY) (CAPSULE)
     Route: 065
     Dates: start: 20220620
  11. MEBEVERINE HYDROCHLORIDE [Concomitant]
     Active Substance: MEBEVERINE HYDROCHLORIDE
     Indication: Product used for unknown indication
     Dosage: 3 DOSAGE FORM, QD (DAY) TABLET
     Route: 065
     Dates: start: 20220620
  12. SERTRALINE [Concomitant]
     Active Substance: SERTRALINE HYDROCHLORIDE
     Indication: Product used for unknown indication
     Dosage: UNK, OD (ONCE DAILY-DOSE REDUCED FROM 150MG AS PREGABA)
     Route: 065
     Dates: start: 20220905
  13. ACETAMINOPHEN\CODEINE PHOSPHATE [Concomitant]
     Active Substance: ACETAMINOPHEN\CODEINE PHOSPHATE
     Indication: Pain
     Dosage: UNK, (TABLET) (ONE- TWO TABLETS TO BE TAKEN FOR PAIN, ONLY WHE)
     Route: 065
     Dates: start: 20220610

REACTIONS (3)
  - Confusional state [Unknown]
  - Somnolence [Recovered/Resolved]
  - Diarrhoea [Recovered/Resolved]

NARRATIVE: CASE EVENT DATE: 20231003
